FAERS Safety Report 5020296-5 (Version None)
Quarter: 2006Q2

REPORT INFORMATION
  Report Type: 
  Country: None (occurrence: None)
  Receive Date: 20060602
  Receipt Date: 20060524
  Transmission Date: 20061013
  Serious: Yes (Hospitalization, Other)
  Sender: FDA-Public Use
  Company Number: 2005-12-0618

PATIENT
  Age: 70 Year
  Sex: Male

DRUGS (39)
  1. DIPROLENE [Suspect]
     Indication: RASH
     Dosage: TOP-DERM
     Dates: start: 20051019, end: 20051028
  2. PREDONINE TABLETS [Suspect]
     Indication: IDIOPATHIC PULMONARY FIBROSIS
     Dosage: 7.5 + 60 + 40 + 20 + 15 + 10 MG* ORAL - SEE IMAGE
     Route: 048
  3. PREDONINE TABLETS [Suspect]
     Indication: IDIOPATHIC PULMONARY FIBROSIS
     Dosage: 7.5 + 60 + 40 + 20 + 15 + 10 MG* ORAL - SEE IMAGE
     Route: 048
  4. PREDONINE TABLETS [Suspect]
     Indication: IDIOPATHIC PULMONARY FIBROSIS
     Dosage: 7.5 + 60 + 40 + 20 + 15 + 10 MG* ORAL - SEE IMAGE
     Route: 048
  5. PREDONINE TABLETS [Suspect]
     Indication: IDIOPATHIC PULMONARY FIBROSIS
     Dosage: 7.5 + 60 + 40 + 20 + 15 + 10 MG* ORAL - SEE IMAGE
     Route: 048
     Dates: start: 20010101
  6. PREDONINE TABLETS [Suspect]
     Indication: IDIOPATHIC PULMONARY FIBROSIS
     Dosage: 7.5 + 60 + 40 + 20 + 15 + 10 MG* ORAL - SEE IMAGE
     Route: 048
     Dates: start: 20041023
  7. PREDONINE TABLETS [Suspect]
     Indication: IDIOPATHIC PULMONARY FIBROSIS
     Dosage: 7.5 + 60 + 40 + 20 + 15 + 10 MG* ORAL - SEE IMAGE
     Route: 048
     Dates: start: 20041119
  8. PREDONINE TABLETS [Suspect]
     Indication: IDIOPATHIC PULMONARY FIBROSIS
     Dosage: 7.5 + 60 + 40 + 20 + 15 + 10 MG* ORAL - SEE IMAGE
     Route: 048
     Dates: start: 20050513
  9. S-7701 (BLINDED PIRFENIDONE) [Suspect]
     Indication: IDIOPATHIC PULMONARY FIBROSIS
     Dosage: 3 + 6 + 9TABS QD ORAL
     Route: 048
     Dates: start: 20050708, end: 20050722
  10. S-7701 (BLINDED PIRFENIDONE) [Suspect]
     Indication: IDIOPATHIC PULMONARY FIBROSIS
     Dosage: 3 + 6 + 9TABS QD ORAL
     Route: 048
     Dates: start: 20050722, end: 20050805
  11. S-7701 (BLINDED PIRFENIDONE) [Suspect]
     Indication: IDIOPATHIC PULMONARY FIBROSIS
     Dosage: 3 + 6 + 9TABS QD ORAL
     Route: 048
     Dates: start: 20050805, end: 20060217
  12. BAKTAR 2 TABS [Concomitant]
  13. CLARITHROMYCIN [Concomitant]
  14. LENDORMIN [Concomitant]
  15. FUNGIZONE [Concomitant]
  16. ZANTAC [Concomitant]
  17. FOSAMAX [Concomitant]
  18. TAKA-DIASTASE [Concomitant]
  19. MAGNESIUM OXIDE [Concomitant]
  20. EURAX [Concomitant]
  21. MYSER (DIFLUPREDNATE) [Concomitant]
  22. DIACORT [Concomitant]
  23. HIRUDOID [Concomitant]
  24. NERISONA [Concomitant]
  25. PANDEL [Concomitant]
  26. VOLTAREN [Concomitant]
  27. LOXONIN [Concomitant]
  28. LACTATED RINGER'S [Concomitant]
  29. NEOPRAMIEL [Concomitant]
  30. PANSPORIN [Concomitant]
  31. SODIUM CHLORIDE [Concomitant]
  32. TANNALBIN [Concomitant]
  33. LACTOMIN [Concomitant]
  34. TIQUIZIUM BROMIDE [Concomitant]
  35. REBAMIPIDE [Concomitant]
  36. BIOFERMIN [Concomitant]
  37. DICLOFENAC SODIUM [Concomitant]
  38. TAMIFLU [Concomitant]
  39. BROCIN-CODEINE [Concomitant]

REACTIONS (4)
  - LUNG NEOPLASM MALIGNANT [None]
  - OSTEONECROSIS [None]
  - PNEUMOCYSTIS JIROVECI PNEUMONIA [None]
  - RASH [None]
